FAERS Safety Report 13839402 (Version 1)
Quarter: 2017Q3

REPORT INFORMATION
  Report Type: Spontaneous
  Country: US (occurrence: US)
  Receive Date: 20170805
  Receipt Date: 20170805
  Transmission Date: 20171127
  Serious: Yes (Death)
  Sender: FDA-Public Use
  Company Number: None

PATIENT
  Age: 56 Year
  Sex: Male

DRUGS (17)
  1. VALPROIC ACID. [Suspect]
     Active Substance: VALPROIC ACID
     Indication: CONVULSION PROPHYLAXIS
     Route: 042
     Dates: end: 20170515
  2. VALPROIC ACID. [Concomitant]
     Active Substance: VALPROIC ACID
  3. VASOPRESSIN. [Concomitant]
     Active Substance: VASOPRESSIN
  4. PROPOFOL. [Concomitant]
     Active Substance: PROPOFOL
  5. SODIUM BICARBONATE. [Concomitant]
     Active Substance: SODIUM BICARBONATE
  6. FENTANYL. [Concomitant]
     Active Substance: FENTANYL
  7. NICARDIPINE [Concomitant]
     Active Substance: NICARDIPINE
  8. SENNA [Concomitant]
     Active Substance: SENNA LEAF\SENNOSIDES\SENNOSIDES A AND B
  9. CEFAZOLIN [Concomitant]
     Active Substance: CEFAZOLIN
  10. CHLORHEXADINE [Concomitant]
     Active Substance: CHLORHEXIDINE
  11. FUROSEMIDE. [Concomitant]
     Active Substance: FUROSEMIDE
  12. INSULIN [Concomitant]
     Active Substance: INSULIN NOS
  13. VANCOMYCIN [Concomitant]
     Active Substance: VANCOMYCIN
  14. CASPOFUNGIN [Concomitant]
     Active Substance: CASPOFUNGIN
  15. EPOPROSTENOL. [Concomitant]
     Active Substance: EPOPROSTENOL
  16. FAMOTIDINE. [Concomitant]
     Active Substance: FAMOTIDINE
  17. PHYTONADIONE. [Concomitant]
     Active Substance: PHYTONADIONE

REACTIONS (7)
  - Ischaemic hepatitis [None]
  - Hyperammonaemia [None]
  - Hyperkalaemia [None]
  - Sedation [None]
  - Lactic acidosis [None]
  - Cardio-respiratory arrest [None]
  - Cardiac tamponade [None]

NARRATIVE: CASE EVENT DATE: 20170514
